FAERS Safety Report 18581572 (Version 1)
Quarter: 2020Q4

REPORT INFORMATION
  Report Type: Spontaneous
  Country: US (occurrence: US)
  Receive Date: 20201203
  Receipt Date: 20201203
  Transmission Date: 20210114
  Serious: Yes (Hospitalization)
  Sender: FDA-Public Use
  Company Number: None

PATIENT
  Sex: Female

DRUGS (2)
  1. MEKINIST [Suspect]
     Active Substance: TRAMETINIB DIMETHYL SULFOXIDE
     Indication: URINARY TRACT INFECTION
     Route: 048
     Dates: start: 20200408
  2. TAFINLAR [Suspect]
     Active Substance: DABRAFENIB MESYLATE
     Indication: URINARY TRACT INFECTION
     Route: 048
     Dates: start: 20200408

REACTIONS (3)
  - Urinary tract infection [None]
  - Therapy interrupted [None]
  - Sepsis [None]
